FAERS Safety Report 4815337-1 (Version None)
Quarter: 2005Q4

REPORT INFORMATION
  Report Type: 
  Country: None (occurrence: None)
  Receive Date: 20051026
  Receipt Date: 20051006
  Transmission Date: 20060501
  Serious: Yes (Other)
  Sender: FDA-Public Use
  Company Number: USA050290513

PATIENT
  Age: 52 Year
  Sex: Female

DRUGS (4)
  1. HUMALOG [Suspect]
     Indication: DIABETES MELLITUS INSULIN-DEPENDENT
  2. HUMULIN R [Suspect]
  3. LANTUS [Concomitant]
  4. PROCRIT [Concomitant]

REACTIONS (7)
  - BLOOD GLUCOSE INCREASED [None]
  - DENTAL OPERATION [None]
  - LIMB INJURY [None]
  - MEDICAL DEVICE COMPLICATION [None]
  - PHARMACEUTICAL PRODUCT COMPLAINT [None]
  - PROCEDURAL PAIN [None]
  - WALDENSTROM'S MACROGLOBULINAEMIA [None]
